FAERS Safety Report 11380763 (Version 1)
Quarter: 2015Q3

REPORT INFORMATION
  Report Type: Spontaneous
  Country: US (occurrence: US)
  Receive Date: 20150814
  Receipt Date: 20150814
  Transmission Date: 20151125
  Serious: No
  Sender: FDA-Public Use
  Company Number: US-JNJFOC-20150310577

PATIENT
  Age: 70 Year
  Sex: Female
  Weight: 40.82 kg

DRUGS (3)
  1. SYNTHROID [Concomitant]
     Active Substance: LEVOTHYROXINE SODIUM
     Indication: THYROID DISORDER
     Route: 065
  2. IMODIUM A-D [Suspect]
     Active Substance: LOPERAMIDE HYDROCHLORIDE
     Route: 048
  3. IMODIUM A-D [Suspect]
     Active Substance: LOPERAMIDE HYDROCHLORIDE
     Indication: DIARRHOEA
     Dosage: 1 TO 2 TEASPOONS DAILY
     Route: 048

REACTIONS (3)
  - Fatigue [Recovering/Resolving]
  - Incorrect dose administered [Unknown]
  - Nausea [Unknown]

NARRATIVE: CASE EVENT DATE: 20150311
